FAERS Safety Report 4627569-6 (Version None)
Quarter: 2005Q2

REPORT INFORMATION
  Report Type: 
  Country: None (occurrence: None)
  Receive Date: 20050405
  Receipt Date: 20050323
  Transmission Date: 20051028
  Serious: Yes (Other)
  Sender: FDA-Public Use
  Company Number: 2005048727

PATIENT
  Sex: Male
  Weight: 40 kg

DRUGS (3)
  1. BENADRYL [Suspect]
     Indication: URTICARIA
     Dosage: 1/4 TO 1 TSP PRN, ORAL
     Route: 048
  2. ZYRTEC [Suspect]
     Indication: URTICARIA
     Dosage: 5 MG DAILY, ORAL
     Route: 048
     Dates: start: 20050321
  3. PREDNISONE [Suspect]
     Dosage: ORAL
     Route: 048

REACTIONS (15)
  - ALLERGY TEST POSITIVE [None]
  - CONDITION AGGRAVATED [None]
  - DRY MOUTH [None]
  - DYSKINESIA [None]
  - DYSPHONIA [None]
  - EYE SWELLING [None]
  - INSOMNIA [None]
  - OEDEMA PERIPHERAL [None]
  - POLYDIPSIA [None]
  - PRURITUS [None]
  - PSYCHOMOTOR HYPERACTIVITY [None]
  - SOMNOLENCE [None]
  - SWELLING FACE [None]
  - TONGUE DISORDER [None]
  - URTICARIA [None]
